FAERS Safety Report 5028735-0 (Version None)
Quarter: 2006Q2

REPORT INFORMATION
  Report Type: 
  Country: None (occurrence: None)
  Receive Date: 20060619
  Receipt Date: 20050902
  Transmission Date: 20061013
  Serious: Yes (Hospitalization)
  Sender: FDA-Public Use
  Company Number: US-BRISTOL-MYERS SQUIBB COMPANY-13099189

PATIENT
  Age: 64 Year
  Sex: Male

DRUGS (6)
  1. CDDP [Suspect]
     Indication: NON-SMALL CELL LUNG CANCER
     Route: 041
     Dates: start: 20050815, end: 20050815
  2. TS-1 [Suspect]
     Indication: NON-SMALL CELL LUNG CANCER
     Route: 048
     Dates: start: 20050815, end: 20050828
  3. PERCOCET [Concomitant]
     Indication: PAIN
     Route: 048
     Dates: start: 20010101
  4. ASPIRIN [Concomitant]
     Indication: CORONARY ARTERY DISEASE
     Route: 048
     Dates: start: 19940101
  5. ATENOLOL [Concomitant]
     Indication: HYPERTENSION
     Route: 048
  6. ZOCOR [Concomitant]
     Indication: CORONARY ARTERY DISEASE
     Route: 048
     Dates: start: 20010101

REACTIONS (29)
  - ASTHENIA [None]
  - ATRIAL FIBRILLATION [None]
  - BLOOD CHLORIDE DECREASED [None]
  - BLOOD PRESSURE SYSTOLIC DECREASED [None]
  - BREATH SOUNDS ABNORMAL [None]
  - CALCIFICATION PANCREATIC DUCT [None]
  - CLOSTRIDIUM DIFFICILE COLITIS [None]
  - CREPITATIONS [None]
  - DECREASED APPETITE [None]
  - DEHYDRATION [None]
  - DIARRHOEA [None]
  - DIZZINESS [None]
  - DRUG HYPERSENSITIVITY [None]
  - HAEMATOCRIT DECREASED [None]
  - HAEMOGLOBIN DECREASED [None]
  - HYPOKALAEMIA [None]
  - HYPOTENSION [None]
  - ILEUS [None]
  - METASTASES TO LUNG [None]
  - NEUTROPHIL COUNT DECREASED [None]
  - OEDEMA PERIPHERAL [None]
  - PLATELET COUNT DECREASED [None]
  - PLEURAL EFFUSION [None]
  - PNEUMOTHORAX [None]
  - RASH [None]
  - RESPIRATORY RATE INCREASED [None]
  - SMALL INTESTINAL OBSTRUCTION [None]
  - WEIGHT DECREASED [None]
  - WHITE BLOOD CELL COUNT DECREASED [None]
